FAERS Safety Report 10510675 (Version 1)
Quarter: 2014Q4

REPORT INFORMATION
  Report Type: Spontaneous
  Country: CH (occurrence: None)
  Receive Date: 20141008
  Receipt Date: 20141008
  Transmission Date: 20150528
  Serious: Yes (Death, Hospitalization)
  Sender: FDA-Public Use
  Company Number: DAV-AE-MTX-14-49

PATIENT
  Age: 65 Year
  Sex: Male

DRUGS (5)
  1. METHOTREXATE [Suspect]
     Active Substance: METHOTREXATE
     Indication: PROPHYLAXIS AGAINST GRAFT VERSUS HOST DISEASE
     Dosage: UNK, DAYS 1, 3 + 6
  2. PREDNISONE. [Concomitant]
     Active Substance: PREDNISONE
  3. BUDENOFALK [Concomitant]
     Active Substance: BUDESONIDE
  4. PROGRAF [Concomitant]
     Active Substance: TACROLIMUS\TACROLIMUS ANHYDROUS
  5. CYCLOSPORINE. [Concomitant]
     Active Substance: CYCLOSPORINE

REACTIONS (8)
  - Diarrhoea [None]
  - Blood creatinine increased [None]
  - C-reactive protein increased [None]
  - Escherichia test positive [None]
  - Confusional state [None]
  - Thrombocytopenia [None]
  - Haemodialysis [None]
  - Haemolytic uraemic syndrome [None]
